FAERS Safety Report 26127632 (Version 2)
Quarter: 2025Q4

REPORT INFORMATION
  Report Type: Spontaneous
  Country: US (occurrence: US)
  Receive Date: 20251206
  Receipt Date: 20251217
  Transmission Date: 20260118
  Serious: Yes (Life-Threatening, Hospitalization)
  Sender: AUROBINDO
  Company Number: US-MLMSERVICE-20251117-PI713848-00293-1

PATIENT
  Age: 11 Year
  Sex: Female
  Weight: 69.3 kg

DRUGS (5)
  1. RISPERIDONE [Suspect]
     Active Substance: RISPERIDONE
     Indication: Product used for unknown indication
     Dosage: 1 MILLIGRAM, TWO TIMES A DAY
     Route: 065
  2. DEXMETHYLPHENIDATE [Suspect]
     Active Substance: DEXMETHYLPHENIDATE
     Indication: Product used for unknown indication
     Dosage: 30 MILLIGRAM, ONCE A DAY
     Route: 065
  3. CLONIDINE [Suspect]
     Active Substance: CLONIDINE
     Indication: Product used for unknown indication
     Dosage: 0.1 MILLIGRAM, TWO TIMES A DAY
     Route: 065
  4. ALBUTEROL [Suspect]
     Active Substance: ALBUTEROL
     Indication: Dyspnoea
     Dosage: 13.5 MILLIGRAM (147 PUFFS, SELF-ADMINISTERED DOSE WAS 13.5 (0.19MG/KG), SIMILAR TO CONTINUOUS NEBULIZER THERAPY)
     Route: 065
  5. LORAZEPAM [Concomitant]
     Active Substance: LORAZEPAM
     Indication: Product used for unknown indication
     Dosage: 1 GRAM
     Route: 065

REACTIONS (2)
  - Supraventricular tachycardia [Recovered/Resolved]
  - Overdose [Unknown]
